FAERS Safety Report 8182215-2 (Version None)
Quarter: 2012Q1

REPORT INFORMATION
  Report Type: 
  Country: None (occurrence: None)
  Receive Date: 20120302
  Receipt Date: 20120223
  Transmission Date: 20120608
  Serious: Yes (Hospitalization)
  Sender: FDA-Public Use
  Company Number: PHHY2012GB015561

PATIENT
  Age: 89 Year
  Sex: Female
  Weight: 64.5 kg

DRUGS (4)
  1. GLICLAZIDE [Concomitant]
  2. ASPIRIN [Concomitant]
  3. ROSUVASTATIN [Concomitant]
  4. METFORMIN HCL [Suspect]
     Dosage: UNK
     Route: 048
     Dates: start: 20120105

REACTIONS (5)
  - BLOOD CREATININE INCREASED [None]
  - HAEMATEMESIS [None]
  - GLOMERULAR FILTRATION RATE ABNORMAL [None]
  - LACTIC ACIDOSIS [None]
  - WHITE BLOOD CELL COUNT INCREASED [None]
